FAERS Safety Report 5156664-0 (Version None)
Quarter: 2006Q4

REPORT INFORMATION
  Report Type: 
  Country: None (occurrence: None)
  Receive Date: 20061115
  Receipt Date: 20061103
  Transmission Date: 20070319
  Serious: No
  Sender: FDA-Public Use
  Company Number: 2006126280

PATIENT
  Age: 75 Year
  Sex: Female

DRUGS (3)
  1. NORVASC [Suspect]
     Dosage: 10 MG
  2. MICARDIS [Suspect]
     Dosage: 80 MG
  3. LASIX [Suspect]
     Dosage: 20 MG

REACTIONS (1)
  - RENAL FAILURE [None]
